FAERS Safety Report 6748562-3 (Version None)
Quarter: 2010Q2

REPORT INFORMATION
  Report Type: 
  Country: None (occurrence: None)
  Receive Date: 20100601
  Receipt Date: 20100518
  Transmission Date: 20101027
  Serious: Yes (Other)
  Sender: FDA-Public Use
  Company Number: AU-JNJFOC-20100508125

PATIENT

DRUGS (5)
  1. INFLIXIMAB [Suspect]
     Indication: CROHN'S DISEASE
     Dosage: RESTARTED AT WEEK 56
     Route: 042
  2. INFLIXIMAB [Suspect]
     Dosage: INDUCTION WEEKS 0, 2 AND 6
     Route: 042
  3. HYDROCORTISONE [Concomitant]
     Indication: PREMEDICATION
     Route: 042
  4. PROMETHAZINE [Concomitant]
     Indication: CROHN'S DISEASE
     Route: 042
  5. PARACETAMOL [Concomitant]
     Indication: CROHN'S DISEASE
     Route: 048

REACTIONS (3)
  - FISTULA [None]
  - GASTROINTESTINAL STOMA COMPLICATION [None]
  - THERAPEUTIC RESPONSE DECREASED [None]
